FAERS Safety Report 9925789 (Version 1)
Quarter: 2014Q1

REPORT INFORMATION
  Report Type: Spontaneous
  Country: US (occurrence: None)
  Receive Date: 20140221
  Receipt Date: 20140221
  Transmission Date: 20141002
  Serious: Yes (Hospitalization)
  Sender: FDA-Public Use
  Company Number: SUM-2014-16935

PATIENT
  Age: 62 Year
  Sex: Female

DRUGS (7)
  1. WELLBUTRIN (BUPROPION HYDROCHLORIDE) [Suspect]
     Indication: DEPRESSION
  2. EFFEXOR XR (VENLAFAXINE) [Suspect]
     Indication: DEPRESSION
     Dates: start: 201011, end: 201307
  3. EFFEXOR XR (VENLAFAXINE) [Suspect]
     Indication: POST-TRAUMATIC STRESS DISORDER
     Dates: start: 201011, end: 201307
  4. EFFEXOR XR (VENLAFAXINE) [Suspect]
     Indication: AGORAPHOBIA
     Dates: start: 201011, end: 201307
  5. VENLAFAXINE HYDROCHLORIDE (VENLAFAXINE HYDROCHLORIDE) [Suspect]
     Indication: DEPRESSION
  6. VENLAFAXINE HYDROCHLORIDE (VENLAFAXINE HYDROCHLORIDE) [Suspect]
     Indication: POST-TRAUMATIC STRESS DISORDER
  7. VENLAFAXINE HYDROCHLORIDE (VENLAFAXINE HYDROCHLORIDE) [Suspect]
     Indication: AGORAPHOBIA

REACTIONS (1)
  - Drug ineffective [None]
